FAERS Safety Report 7905018-X (Version None)
Quarter: 2011Q4

REPORT INFORMATION
  Report Type: 
  Country: None (occurrence: None)
  Receive Date: 20111109
  Receipt Date: 20111101
  Transmission Date: 20120403
  Serious: Yes (Hospitalization, Other)
  Sender: FDA-Public Use
  Company Number: US-PURDUE-USA-2011-0075749

PATIENT
  Sex: Male

DRUGS (4)
  1. OXYCONTIN [Suspect]
     Indication: PAIN
     Dosage: 30 MG, Q8H
     Dates: start: 20100831
  2. OXYCONTIN [Suspect]
     Indication: SUBSTANCE ABUSE
     Dosage: 80 MG, Q8H
     Dates: start: 20100831
  3. COCAINE [Suspect]
     Indication: SUBSTANCE ABUSE
  4. HEROIN [Suspect]
     Indication: SUBSTANCE ABUSE

REACTIONS (5)
  - THROMBOSIS [None]
  - PULMONARY EMBOLISM [None]
  - DRUG WITHDRAWAL SYNDROME [None]
  - SUBSTANCE ABUSE [None]
  - PAIN [None]
